FAERS Safety Report 10165985 (Version 1)
Quarter: 2014Q2

REPORT INFORMATION
  Report Type: Spontaneous
  Country: JP (occurrence: JP)
  Receive Date: 20140511
  Receipt Date: 20140511
  Transmission Date: 20141212
  Serious: Yes (Other)
  Sender: FDA-Public Use
  Company Number: PHHY2014JP056447

PATIENT
  Age: 66 Year
  Sex: Male

DRUGS (2)
  1. NEORAL [Suspect]
     Indication: INTERSTITIAL LUNG DISEASE
     Dosage: 50 MG, (ONCE BEFORE THE MIDDAY MEAL DAILY)
     Route: 048
     Dates: end: 200912
  2. NEORAL [Suspect]
     Indication: OFF LABEL USE

REACTIONS (1)
  - Interstitial lung disease [Unknown]
